FAERS Safety Report 7207714-9 (Version None)
Quarter: 2011Q1

REPORT INFORMATION
  Report Type: 
  Country: None (occurrence: None)
  Receive Date: 20110103
  Receipt Date: 20101214
  Transmission Date: 20110831
  Serious: No
  Sender: FDA-Public Use
  Company Number: US-B.I. PHARMACEUTICALS,INC./RIDGEFIELD-2010-BP-14608BP

PATIENT
  Age: 55 Year
  Sex: Female

DRUGS (3)
  1. SPIRIVA [Suspect]
     Dosage: 18 MCG
     Route: 055
     Dates: start: 20101210
  2. PERCOCET [Concomitant]
     Indication: PAIN
     Route: 048
     Dates: start: 20070101
  3. SPIRIVA [Suspect]
     Indication: BRONCHITIS
     Dosage: 18 MCG
     Route: 055
     Dates: start: 20101021, end: 20101031

REACTIONS (3)
  - ABDOMINAL PAIN LOWER [None]
  - NASOPHARYNGITIS [None]
  - ABDOMINAL PAIN UPPER [None]
